FAERS Safety Report 19094291 (Version 1)
Quarter: 2021Q2

REPORT INFORMATION
  Report Type: Spontaneous
  Country: US (occurrence: US)
  Receive Date: 20210405
  Receipt Date: 20210405
  Transmission Date: 20210717
  Serious: No
  Sender: FDA-Public Use
  Company Number: US-SA-2021SA106466

PATIENT
  Age: 5 Year
  Sex: Male

DRUGS (2)
  1. DIPHENHYDRAMINE HYDROCHLORIDE. [Suspect]
     Active Substance: DIPHENHYDRAMINE HYDROCHLORIDE
     Dosage: UNK
  2. CHILDREN^S ALLEGRA ALLERGY [Suspect]
     Active Substance: FEXOFENADINE HYDROCHLORIDE
     Indication: URTICARIA
     Dosage: DRUG STRUCTURE DOSAGE : 10 MG DRUG INTERVAL DOSAGE : EVERY 12 HOURS
     Dates: start: 20210324

REACTIONS (3)
  - Contusion [Unknown]
  - Drug ineffective [Unknown]
  - Skin discolouration [Unknown]
